FAERS Safety Report 8925359 (Version 2)
Quarter: 2013Q1

REPORT INFORMATION
  Report Type: Spontaneous
  Country: BR (occurrence: BR)
  Receive Date: 20121126
  Receipt Date: 20130208
  Transmission Date: 20140127
  Serious: Yes (Death, Hospitalization)
  Sender: FDA-Public Use
  Company Number: BR-009507513-1211BRA006994

PATIENT
  Age: 39 Year
  Sex: Male
  Weight: 70 kg

DRUGS (8)
  1. VICTRELIS [Suspect]
     Indication: HEPATITIS C
     Dosage: UNK MG, TID
     Route: 048
     Dates: start: 20120804, end: 20121110
  2. VICTRELIS [Suspect]
     Indication: HEPATIC CIRRHOSIS
  3. RIBAVIRIN [Suspect]
     Indication: HEPATITIS C
     Dosage: 3 DF, QAM
  4. RIBAVIRIN [Suspect]
     Dosage: 2 DF, QPM
  5. INTERFERON (UNSPECIFIED) [Concomitant]
     Indication: HEPATITIS C
     Dosage: UNK, QW
  6. RIBAVIRIN [Concomitant]
     Indication: HEPATITIS C
     Dosage: UNK, BID
  7. EPOETIN [Concomitant]
     Dosage: UNK, Q3W
  8. FILGRASTIM [Concomitant]
     Dosage: UNK, Q3W

REACTIONS (8)
  - Decreased immune responsiveness [Fatal]
  - Body temperature decreased [Fatal]
  - Pain [Fatal]
  - Abdominal pain upper [Fatal]
  - Alopecia [Fatal]
  - Asthenia [Unknown]
  - Dysgeusia [Fatal]
  - Off label use [Unknown]
